FAERS Safety Report 21765347 (Version 2)
Quarter: 2022Q4

REPORT INFORMATION
  Report Type: Report from Study
  Country: US (occurrence: US)
  Receive Date: 20221222
  Receipt Date: 20221228
  Transmission Date: 20230113
  Serious: Yes (Other)
  Sender: FDA-Public Use
  Company Number: US-MYLANLABS-2022M1145196

PATIENT
  Sex: Female

DRUGS (3)
  1. AMNESTEEM [Suspect]
     Active Substance: ISOTRETINOIN
     Indication: Product used for unknown indication
     Dosage: 80 MILLIGRAM, QD (AVERAGE DAILY DOSE 80 MILLIGRAM)
     Route: 065
     Dates: start: 20220609, end: 20220708
  2. AMNESTEEM [Suspect]
     Active Substance: ISOTRETINOIN
     Dosage: 40 MILLIGRAM, BID((APPROXIMATE START DATE:09-JUN-2022)
     Route: 065
     Dates: start: 202206, end: 20220708
  3. AMNESTEEM [Suspect]
     Active Substance: ISOTRETINOIN
     Dosage: UNK
     Route: 065
     Dates: start: 2022

REACTIONS (1)
  - Maternal exposure during pregnancy [Not Recovered/Not Resolved]
